FAERS Safety Report 4772919-3 (Version None)
Quarter: 2005Q3

REPORT INFORMATION
  Report Type: 
  Country: None (occurrence: None)
  Receive Date: 20050919
  Receipt Date: 20050909
  Transmission Date: 20060218
  Serious: Yes (Hospitalization, Other)
  Sender: FDA-Public Use
  Company Number: BR-JNJFOC-20050806816

PATIENT
  Age: 5 Year
  Sex: Female

DRUGS (1)
  1. HALDOL [Suspect]
     Dosage: (UNSPECIFIED DOSE)

REACTIONS (5)
  - ACCIDENTAL DRUG INTAKE BY CHILD [None]
  - DECREASED ACTIVITY [None]
  - HYPOTONIA [None]
  - OVERDOSE [None]
  - PUPIL FIXED [None]
